FAERS Safety Report 22203005 (Version 2)
Quarter: 2023Q2

REPORT INFORMATION
  Report Type: Spontaneous
  Country: TW (occurrence: TW)
  Receive Date: 20230412
  Receipt Date: 20230530
  Transmission Date: 20230722
  Serious: Yes (Other)
  Sender: FDA-Public Use
  Company Number: TW-ALXN-A202304598

PATIENT
  Age: 13 Year

DRUGS (1)
  1. SOLIRIS [Suspect]
     Active Substance: ECULIZUMAB
     Indication: Atypical haemolytic uraemic syndrome
     Dosage: 600 MG
     Route: 041
     Dates: start: 20230404

REACTIONS (2)
  - Atypical haemolytic uraemic syndrome [Unknown]
  - Condition aggravated [Unknown]
